FAERS Safety Report 11387134 (Version 1)
Quarter: 2015Q3

REPORT INFORMATION
  Report Type: Spontaneous
  Country: US (occurrence: None)
  Receive Date: 20150814
  Receipt Date: 20150814
  Transmission Date: 20151125
  Serious: Yes (Hospitalization)
  Sender: FDA-Public Use
  Company Number: None

PATIENT
  Age: 79 Year
  Sex: Male
  Weight: 87.2 kg

DRUGS (12)
  1. GLIPIZIDE 10MG BID(AC) [Suspect]
     Active Substance: GLIPIZIDE
     Dosage: AC
  2. AMLODIPINE [Concomitant]
     Active Substance: AMLODIPINE BESYLATE
  3. TUMS [Concomitant]
     Active Substance: CALCIUM CARBONATE
  4. MICROZIDE [Concomitant]
     Active Substance: HYDROCHLOROTHIAZIDE
  5. FLOMAX [Concomitant]
     Active Substance: TAMSULOSIN HYDROCHLORIDE
  6. INVOKANA [Suspect]
     Active Substance: CANAGLIFLOZIN
     Indication: DIABETES MELLITUS
     Dosage: CHRONIC
     Route: 048
  7. AVAPRO [Concomitant]
     Active Substance: IRBESARTAN
  8. JANUMET [Suspect]
     Active Substance: METFORMIN HYDROCHLORIDE\SITAGLIPTIN PHOSPHATE
     Dosage: 50-1,000MG?DAILY?PO?CHRONIC
     Route: 048
  9. THERAGRAN [Concomitant]
     Active Substance: VITAMINS
  10. LIPITOR [Concomitant]
     Active Substance: ATORVASTATIN CALCIUM
  11. OSTEO-BIFLEX [Concomitant]
  12. SYNTHROID [Concomitant]
     Active Substance: LEVOTHYROXINE SODIUM

REACTIONS (4)
  - Oropharyngeal pain [None]
  - Renal impairment [None]
  - Hypoglycaemia [None]
  - Hypophagia [None]

NARRATIVE: CASE EVENT DATE: 20150213
